FAERS Safety Report 5649739-0 (Version None)
Quarter: 2008Q1

REPORT INFORMATION
  Report Type: 
  Country: None (occurrence: None)
  Receive Date: 20080304
  Receipt Date: 20080229
  Transmission Date: 20080703
  Serious: Yes (Life-Threatening, Disabling, Other)
  Sender: FDA-Public Use
  Company Number: DE-BOEHRINGER INGELHEIM GMBH, GERMANY-2008-DE-00489DE

PATIENT
  Sex: Male
  Weight: 80 kg

DRUGS (4)
  1. SIFROL [Suspect]
     Indication: RESTLESS LEGS SYNDROME
     Dates: start: 20061017
  2. SIFROL [Suspect]
     Route: 048
     Dates: end: 20071030
  3. ADARTREL [Concomitant]
  4. ALFUZOSIN HCL [Concomitant]
     Indication: BENIGN PROSTATIC HYPERPLASIA

REACTIONS (24)
  - BLOOD PRESSURE DECREASED [None]
  - BLOOD PRESSURE FLUCTUATION [None]
  - CONDITION AGGRAVATED [None]
  - DELUSION [None]
  - DIZZINESS [None]
  - DYSKINESIA [None]
  - GAIT DISTURBANCE [None]
  - HALLUCINATION [None]
  - INSOMNIA [None]
  - LIBIDO DECREASED [None]
  - LYMPH NODE PAIN [None]
  - LYMPHADENOPATHY [None]
  - MENTAL DISORDER [None]
  - MUSCLE SPASMS [None]
  - NERVOUSNESS [None]
  - NEUROMUSCULAR BLOCKADE [None]
  - PAIN IN EXTREMITY [None]
  - PARALYSIS [None]
  - QUALITY OF LIFE DECREASED [None]
  - STRESS [None]
  - TREMOR [None]
  - VEIN DISORDER [None]
  - VISUAL DISTURBANCE [None]
  - WITHDRAWAL SYNDROME [None]
